FAERS Safety Report 7746435-0 (Version None)
Quarter: 2011Q3

REPORT INFORMATION
  Report Type: 
  Country: None (occurrence: None)
  Receive Date: 20110912
  Receipt Date: 20110912
  Transmission Date: 20111222
  Serious: Yes (Hospitalization)
  Sender: FDA-Public Use
  Company Number: None

PATIENT
  Age: 32 Year
  Sex: Female
  Weight: 54.4316 kg

DRUGS (2)
  1. XANAX [Suspect]
     Indication: PANIC DISORDER
     Dosage: 1MG/ORAL
     Route: 048
     Dates: start: 20010101
  2. XANAX [Suspect]
     Indication: ANXIETY
     Dosage: 1MG/ORAL
     Route: 048
     Dates: start: 20010101

REACTIONS (1)
  - DYSPNOEA [None]
